FAERS Safety Report 5791588-7 (Version None)
Quarter: 2008Q2

REPORT INFORMATION
  Report Type: 
  Country: None (occurrence: None)
  Receive Date: 20080626
  Receipt Date: 20080306
  Transmission Date: 20081010
  Serious: No
  Sender: FDA-Public Use
  Company Number: A0713790A

PATIENT

DRUGS (6)
  1. ALLI [Suspect]
  2. DILANTIN [Concomitant]
  3. CLONAZEPAM [Concomitant]
  4. PAXIL [Concomitant]
  5. LEVOTHROID [Concomitant]
  6. ANTIHISTAMINE [Concomitant]

REACTIONS (2)
  - DRUG INTERACTION [None]
  - PANIC ATTACK [None]
